FAERS Safety Report 10088818 (Version 1)
Quarter: 2014Q2

REPORT INFORMATION
  Report Type: Spontaneous
  Country: FR (occurrence: FR)
  Receive Date: 20140421
  Receipt Date: 20140421
  Transmission Date: 20141212
  Serious: Yes (Hospitalization)
  Sender: FDA-Public Use
  Company Number: FR-JNJFOC-20140408047

PATIENT
  Age: 38 Year
  Sex: Female

DRUGS (3)
  1. INTELENCE [Suspect]
     Indication: HIV INFECTION
     Route: 048
     Dates: start: 20140306, end: 20140317
  2. ISENTRESS [Suspect]
     Indication: HIV INFECTION
     Route: 048
     Dates: start: 20140306, end: 20140317
  3. REYATAZ [Suspect]
     Indication: HIV INFECTION
     Route: 048
     Dates: start: 20140306, end: 20140317

REACTIONS (4)
  - Syncope [Recovering/Resolving]
  - Pruritus [Recovering/Resolving]
  - Eosinophil count increased [Recovering/Resolving]
  - Rash maculo-papular [Recovering/Resolving]
